FAERS Safety Report 25863784 (Version 1)
Quarter: 2025Q3

REPORT INFORMATION
  Report Type: Spontaneous
  Country: US (occurrence: None)
  Receive Date: 20250929
  Receipt Date: 20250929
  Transmission Date: 20251021
  Serious: Yes (unspecified)
  Sender: FDA-CTU
  Company Number: None

PATIENT

DRUGS (1)
  1. CYMBALTA [Suspect]
     Active Substance: DULOXETINE HYDROCHLORIDE
     Dosage: FREQUENCY : DAILY;?
     Route: 048

REACTIONS (4)
  - Therapy interrupted [None]
  - Anxiety [None]
  - Injury [None]
  - Symptom recurrence [None]

NARRATIVE: CASE EVENT DATE: 20250924
